FAERS Safety Report 9013381 (Version 6)
Quarter: 2013Q3

REPORT INFORMATION
  Report Type: Spontaneous
  Country: US (occurrence: US)
  Receive Date: 20130114
  Receipt Date: 20130701
  Transmission Date: 20140515
  Serious: Yes (Hospitalization, Other)
  Sender: FDA-Public Use
  Company Number: US-009507513-1301USA004606

PATIENT
  Sex: Female
  Weight: 60.77 kg

DRUGS (7)
  1. FOSAMAX [Suspect]
     Indication: OSTEOPOROSIS
     Dosage: 70 MG, QW
     Route: 048
     Dates: start: 20020101, end: 20101225
  2. ALENDRONATE SODIUM [Suspect]
     Dosage: 70 MG, UNK
     Route: 048
  3. VITAMINS (UNSPECIFIED) [Concomitant]
     Indication: VITAMIN SUPPLEMENTATION
     Dosage: UNK
     Dates: start: 1954
  4. SYNTHROID [Concomitant]
     Indication: HYPOTHYROIDISM
     Dosage: UNK
     Dates: start: 2000
  5. HYDROCHLOROT [Concomitant]
     Indication: HYPERTENSION
     Dosage: UNK
     Dates: start: 2010
  6. SIMVASTATIN [Concomitant]
     Indication: BLOOD CHOLESTEROL INCREASED
     Dosage: UNK
     Dates: start: 2010
  7. CORTICOSTEROIDS (UNSPECIFIED) [Concomitant]
     Indication: ASTHMA
     Dosage: UNK
     Dates: start: 201008, end: 201101

REACTIONS (31)
  - Intramedullary rod insertion [Unknown]
  - Intramedullary rod insertion [Unknown]
  - Intramedullary rod insertion [Unknown]
  - Femur fracture [Unknown]
  - Femur fracture [Unknown]
  - Femur fracture [Unknown]
  - Post-traumatic stress disorder [Unknown]
  - Low turnover osteopathy [Unknown]
  - Depression [Unknown]
  - Anxiety [Unknown]
  - Muscular weakness [Unknown]
  - Spinal osteoarthritis [Unknown]
  - Scoliosis [Unknown]
  - Osteoarthritis [Unknown]
  - Neuropathy peripheral [Unknown]
  - Osteopenia [Unknown]
  - Head injury [Unknown]
  - Spinal column stenosis [Unknown]
  - Vascular calcification [Unknown]
  - Coronary artery disease [Unknown]
  - Gastric dilatation [Recovered/Resolved]
  - Cushingoid [Unknown]
  - Spondylolisthesis [Unknown]
  - Polymyalgia rheumatica [Unknown]
  - Pain in extremity [Unknown]
  - Musculoskeletal pain [Unknown]
  - Pain in extremity [Unknown]
  - Back pain [Unknown]
  - Gastrooesophageal reflux disease [Unknown]
  - Pain in extremity [Unknown]
  - Oedema peripheral [Unknown]
